FAERS Safety Report 11518285 (Version 2)
Quarter: 2015Q4

REPORT INFORMATION
  Report Type: Spontaneous
  Country: US (occurrence: US)
  Receive Date: 20150917
  Receipt Date: 20151029
  Transmission Date: 20160304
  Serious: No
  Sender: FDA-Public Use
  Company Number: US-LEO PHARMA-236989

PATIENT
  Age: 60 Year
  Sex: Female

DRUGS (1)
  1. PICATO [Suspect]
     Active Substance: INGENOL MEBUTATE
     Indication: ACTINIC KERATOSIS
     Dates: start: 20150909, end: 20150911

REACTIONS (10)
  - Oropharyngeal pain [Recovered/Resolved]
  - Skin sensitisation [Unknown]
  - Staphylococcal infection [Recovered/Resolved]
  - Application site swelling [Not Recovered/Not Resolved]
  - Wrong technique in product usage process [Unknown]
  - Application site scab [Not Recovered/Not Resolved]
  - Application site vesicles [Recovered/Resolved]
  - Application site erythema [Not Recovered/Not Resolved]
  - Application site pruritus [Not Recovered/Not Resolved]
  - Application site burn [Not Recovered/Not Resolved]

NARRATIVE: CASE EVENT DATE: 20150909
